FAERS Safety Report 20755223 (Version 1)
Quarter: 2022Q2

REPORT INFORMATION
  Report Type: Spontaneous
  Country: CN (occurrence: CN)
  Receive Date: 20220427
  Receipt Date: 20220427
  Transmission Date: 20220720
  Serious: Yes (Hospitalization)
  Sender: FDA-Public Use
  Company Number: CN-LUPIN PHARMACEUTICALS INC.-2022-06154

PATIENT
  Age: 42 Year
  Sex: Male

DRUGS (9)
  1. POTASSIUM [Suspect]
     Active Substance: POTASSIUM
     Indication: Supplementation therapy
     Dosage: UNK (TABLET)
     Route: 048
  2. POTASSIUM [Suspect]
     Active Substance: POTASSIUM
     Indication: Hypokalaemia
     Dosage: UNK (SOLUTION)
     Route: 048
  3. MAGNESIUM [Suspect]
     Active Substance: MAGNESIUM
     Indication: Supplementation therapy
     Dosage: UNK
     Route: 065
  4. MAGNESIUM [Suspect]
     Active Substance: MAGNESIUM
     Indication: Hypokalaemia
  5. CETUXIMAB [Concomitant]
     Active Substance: CETUXIMAB
     Indication: Colorectal cancer metastatic
     Dosage: 1.1 GRAM 12 CYCLES
     Route: 065
  6. CETUXIMAB [Concomitant]
     Active Substance: CETUXIMAB
     Dosage: 0.8 GRAM RECEIVED TOTAL 35 CYCLES
     Route: 065
     Dates: start: 20200916, end: 20201123
  7. OXALIPLATIN [Concomitant]
     Active Substance: OXALIPLATIN
     Indication: Colorectal cancer metastatic
     Dosage: UNK-ADMINISTERED UNDER THE MFOLFOX6 CHEMOTHERAPY REGIMEN (12 CYCLES)
     Route: 065
  8. LEUCOVORIN [Concomitant]
     Active Substance: LEUCOVORIN
     Indication: Colorectal cancer metastatic
     Dosage: ADMINISTERED UNDER THE MFOLFOX6 CHEMOTHERAPY REGIMEN (12 CYCLES)
     Route: 065
  9. FLUOROURACIL [Concomitant]
     Active Substance: FLUOROURACIL
     Indication: Colorectal cancer metastatic
     Dosage: ADMINISTERED UNDER THE MFOLFOX6 CHEMOTHERAPY REGIMEN (12 CYCLES)
     Route: 065

REACTIONS (1)
  - Therapy non-responder [Unknown]
